FAERS Safety Report 25277299 (Version 1)
Quarter: 2025Q2

REPORT INFORMATION
  Report Type: Report from Study
  Country: US (occurrence: US)
  Receive Date: 20250507
  Receipt Date: 20250507
  Transmission Date: 20250717
  Serious: No
  Sender: SUNOVION
  Company Number: US-SUMITOMO PHARMA SWITZERLAND GMBH-2024SPA005186

PATIENT

DRUGS (4)
  1. ORGOVYX [Suspect]
     Active Substance: RELUGOLIX
     Indication: Prostate cancer
     Dosage: 360 MG, SINGLE
     Route: 048
     Dates: start: 202409, end: 202409
  2. ORGOVYX [Suspect]
     Active Substance: RELUGOLIX
     Dosage: 120 MG, QD
     Route: 048
     Dates: start: 202409
  3. TAMSULOSIN [Concomitant]
     Active Substance: TAMSULOSIN
  4. XTANDI [Concomitant]
     Active Substance: ENZALUTAMIDE
     Indication: Prostate cancer

REACTIONS (3)
  - Rash [Unknown]
  - Therapeutic response unexpected [Unknown]
  - Product dose omission issue [Unknown]
